FAERS Safety Report 6038405-8 (Version None)
Quarter: 2009Q1

REPORT INFORMATION
  Report Type: 
  Country: None (occurrence: None)
  Receive Date: 20090115
  Receipt Date: 20081229
  Transmission Date: 20090719
  Serious: No
  Sender: FDA-Public Use
  Company Number: US-BAYER-200814993BCC

PATIENT
  Sex: Female

DRUGS (1)
  1. ALEVE [Suspect]
     Indication: ARTHRITIS

REACTIONS (1)
  - PETECHIAE [None]
